FAERS Safety Report 8759416 (Version 1)
Quarter: 2012Q4

REPORT INFORMATION
  Report Type: 
  Country: US (occurrence: US)
  Receive Date: 20120829
  Receipt Date: 20120829
  Transmission Date: 20130627
  Serious: No
  Sender: FDA-Public Use
  Company Number: US-BAYER-2012-089395

PATIENT
  Sex: Female
  Weight: 56.69 kg

DRUGS (5)
  1. BETASERON [Suspect]
     Dosage: 1 ml, QOD
     Route: 058
  2. AMOXICILLIN [Concomitant]
     Dosage: 250 mg, UNK
  3. WELLBUTRIN [Concomitant]
     Dosage: 75 mg, UNK
  4. PROZAC [Concomitant]
     Dosage: 10 mg, UNK
  5. VITAMIN D2 [Concomitant]
     Dosage: 400 unit

REACTIONS (3)
  - Muscle twitching [Unknown]
  - Hypoaesthesia [Unknown]
  - Temperature intolerance [Unknown]
